FAERS Safety Report 6796019-6 (Version None)
Quarter: 2010Q2

REPORT INFORMATION
  Report Type: 
  Country: None (occurrence: None)
  Receive Date: 20100625
  Receipt Date: 20100618
  Transmission Date: 20101027
  Serious: Yes (Other)
  Sender: FDA-Public Use
  Company Number: US-JNJFOC-20100403558

PATIENT
  Sex: Male
  Weight: 86.18 kg

DRUGS (3)
  1. ULTRAM [Suspect]
     Indication: BACK PAIN
     Dosage: THREE TIMES A DAY
     Route: 048
  2. ULTRAM [Suspect]
     Dosage: THREE TIMES A DAY
     Route: 048
  3. UNSPECIFIED TRAMADOL [Suspect]
     Indication: BACK PAIN
     Dosage: THREE TIMES A DAY
     Route: 048

REACTIONS (12)
  - BACK PAIN [None]
  - BODY HEIGHT DECREASED [None]
  - CHEST PAIN [None]
  - DIZZINESS [None]
  - DYSSTASIA [None]
  - GASTROOESOPHAGEAL REFLUX DISEASE [None]
  - HEADACHE [None]
  - MUSCLE SPASMS [None]
  - MUSCLE TWITCHING [None]
  - PRODUCT QUALITY ISSUE [None]
  - TREATMENT NONCOMPLIANCE [None]
  - WITHDRAWAL SYNDROME [None]
